FAERS Safety Report 6137555-5 (Version None)
Quarter: 2009Q1

REPORT INFORMATION
  Report Type: 
  Country: None (occurrence: None)
  Receive Date: 20090326
  Receipt Date: 20090114
  Transmission Date: 20090719
  Serious: Yes (Hospitalization)
  Sender: FDA-Public Use
  Company Number: 2009EU001157

PATIENT
  Age: 22 Year
  Sex: Female

DRUGS (9)
  1. PROGRAF [Suspect]
     Indication: IMMUNOSUPPRESSION
     Dosage: MG, ORAL/D ; D/IV
  2. CLARITHROMYCIN [Suspect]
     Indication: PNEUMONIA LEGIONELLA
     Dosage: 500 MG, TOTAL DOSE, IV NOS
     Route: 042
  3. METHYLPREDNISOLONE [Concomitant]
  4. MEROPENEM (MEROPENEM) [Concomitant]
  5. GANCICLOVIR [Concomitant]
  6. AZATHIOPRINE [Concomitant]
  7. SMZ-TMP (SULFAMETHOXAZOLE, TRIMETHOPRIM) [Concomitant]
  8. PIRITRAMIDE (PIRITRAMIDE) [Concomitant]
  9. MIDAZOLAM HCL [Concomitant]

REACTIONS (4)
  - DRUG INTERACTION [None]
  - DRUG TOXICITY [None]
  - PNEUMONIA [None]
  - RESPIRATORY FAILURE [None]
